FAERS Safety Report 20091839 (Version 35)
Quarter: 2025Q3

REPORT INFORMATION
  Report Type: Report from Study
  Country: CO (occurrence: CO)
  Receive Date: 20211119
  Receipt Date: 20250923
  Transmission Date: 20251021
  Serious: Yes (Hospitalization, Other)
  Sender: TAKEDA
  Company Number: CO-TAKEDA-CO202029298

PATIENT
  Age: 33 Year
  Sex: Female
  Weight: 56 kg

DRUGS (10)
  1. ICATIBANT [Suspect]
     Active Substance: ICATIBANT ACETATE
     Indication: Hereditary angioedema
  2. ICATIBANT [Suspect]
     Active Substance: ICATIBANT ACETATE
  3. ICATIBANT [Suspect]
     Active Substance: ICATIBANT ACETATE
     Dosage: 30 MILLIGRAM, Q6HR
  4. ICATIBANT [Suspect]
     Active Substance: ICATIBANT ACETATE
  5. ICATIBANT [Suspect]
     Active Substance: ICATIBANT ACETATE
  6. TAKHZYRO [Suspect]
     Active Substance: LANADELUMAB-FLYO
     Indication: Hereditary angioedema
     Dosage: 150 MILLIGRAM, MONTHLY
     Dates: start: 20230929
  7. TAKHZYRO [Suspect]
     Active Substance: LANADELUMAB-FLYO
     Indication: Immune system disorder
     Dosage: UNK UNK, MONTHLY
     Dates: start: 20231001
  8. TAKHZYRO [Suspect]
     Active Substance: LANADELUMAB-FLYO
     Dosage: 150 MILLIGRAM, MONTHLY
  9. TAKHZYRO [Suspect]
     Active Substance: LANADELUMAB-FLYO
     Dosage: UNK UNK, MONTHLY
  10. TAKHZYRO [Suspect]
     Active Substance: LANADELUMAB-FLYO
     Dosage: 300 MILLIGRAM/2 ML, MONTHLY

REACTIONS (21)
  - Foetal heart rate abnormal [Recovered/Resolved]
  - Abortion incomplete [Recovered/Resolved]
  - Application site erythema [Recovered/Resolved]
  - Application site hypersensitivity [Recovered/Resolved]
  - Treatment noncompliance [Not Recovered/Not Resolved]
  - Vaginal haemorrhage [Recovering/Resolving]
  - Discomfort [Recovered/Resolved]
  - Road traffic accident [Recovering/Resolving]
  - Head injury [Recovering/Resolving]
  - Limb injury [Recovering/Resolving]
  - Pain in extremity [Recovering/Resolving]
  - Oedema [Recovered/Resolved]
  - Vomiting [Recovered/Resolved]
  - Influenza [Not Recovered/Not Resolved]
  - Pregnancy [Unknown]
  - Abdominal pain [Recovered/Resolved]
  - Diarrhoea [Recovered/Resolved]
  - Hereditary angioedema [Recovered/Resolved]
  - Dizziness [Recovered/Resolved]
  - Headache [Recovering/Resolving]
  - Insurance issue [Not Recovered/Not Resolved]

NARRATIVE: CASE EVENT DATE: 20210302
